FAERS Safety Report 8561518-3 (Version None)
Quarter: 2012Q3

REPORT INFORMATION
  Report Type: 
  Country: None (occurrence: None)
  Receive Date: 20120802
  Receipt Date: 20120724
  Transmission Date: 20120928
  Serious: Yes (Hospitalization, Other)
  Sender: FDA-Public Use
  Company Number: KR-JNJFOC-20120512785

PATIENT
  Age: 5 Decade
  Sex: Female

DRUGS (2)
  1. REMICADE [Suspect]
     Indication: PSORIASIS
     Dosage: 4TH INFUSION
     Route: 042
     Dates: start: 20120724, end: 20120724
  2. REMICADE [Suspect]
     Route: 042

REACTIONS (3)
  - INFUSION RELATED REACTION [None]
  - HERPES ZOSTER [None]
  - DYSPNOEA [None]
